FAERS Safety Report 7561434-X (Version None)
Quarter: 2011Q2

REPORT INFORMATION
  Report Type: 
  Country: None (occurrence: None)
  Receive Date: 20110621
  Receipt Date: 20101118
  Transmission Date: 20111010
  Serious: No
  Sender: FDA-Public Use
  Company Number: US-ASTRAZENECA-2010SE55454

PATIENT
  Sex: Female

DRUGS (3)
  1. PULMICORT [Suspect]
     Route: 055
  2. ATACAND HCT [Suspect]
     Route: 048
  3. CRESTOR [Suspect]
     Route: 048

REACTIONS (2)
  - MENTAL DISORDER [None]
  - BLOOD PRESSURE INCREASED [None]
